FAERS Safety Report 8543800-9 (Version None)
Quarter: 2012Q3

REPORT INFORMATION
  Report Type: 
  Country: None (occurrence: None)
  Receive Date: 20120727
  Receipt Date: 20120716
  Transmission Date: 20120928
  Serious: No
  Sender: FDA-Public Use
  Company Number: US-PFIZER INC-2012166231

PATIENT
  Age: 50 Year
  Sex: Female

DRUGS (1)
  1. VANCOMYCIN HCL [Suspect]
     Dosage: UNK
     Route: 042
     Dates: start: 20120103, end: 20120107

REACTIONS (8)
  - BLOOD LACTIC ACID INCREASED [None]
  - ABNORMAL BEHAVIOUR [None]
  - BLISTER [None]
  - SKIN EXFOLIATION [None]
  - ERYTHEMA [None]
  - PRURITUS [None]
  - RED MAN SYNDROME [None]
  - ALOPECIA [None]
